FAERS Safety Report 7122662-0 (Version None)
Quarter: 2010Q4

REPORT INFORMATION
  Report Type: 
  Country: None (occurrence: None)
  Receive Date: 20101124
  Receipt Date: 20101116
  Transmission Date: 20110411
  Serious: Yes (Death)
  Sender: FDA-Public Use
  Company Number: JP-WATSON-2010-13134

PATIENT
  Age: 40 Year
  Sex: Male

DRUGS (2)
  1. FLUOROURACIL [Suspect]
     Indication: OESOPHAGEAL CARCINOMA
     Dosage: 500 MG/BODY DAYS 1-5
     Route: 042
  2. CISPLATIN [Suspect]
     Indication: OESOPHAGEAL CARCINOMA
     Dosage: 10 MG/BODY DAYS 1-5
     Route: 042

REACTIONS (2)
  - PNEUMATOSIS INTESTINALIS [None]
  - PORTAL VENOUS GAS [None]
